FAERS Safety Report 7064778-3 (Version None)
Quarter: 2010Q4

REPORT INFORMATION
  Report Type: 
  Country: None (occurrence: None)
  Receive Date: 20101027
  Receipt Date: 19850702
  Transmission Date: 20110411
  Serious: Yes (Death)
  Sender: FDA-Public Use
  Company Number: US-ROCHE-850200896001

PATIENT
  Age: 37 Year
  Sex: Male
  Weight: 72.6 kg

DRUGS (2)
  1. FANSIDAR [Suspect]
     Route: 048
  2. PABA-TAN [Concomitant]
     Route: 065

REACTIONS (5)
  - BLOOD CREATININE INCREASED [None]
  - LEUKOPENIA [None]
  - PNEUMOCYSTIS JIROVECI PNEUMONIA [None]
  - RASH PAPULAR [None]
  - TRANSAMINASES INCREASED [None]
